FAERS Safety Report 12212778 (Version 1)
Quarter: 2016Q1

REPORT INFORMATION
  Report Type: Spontaneous
  Country: US (occurrence: US)
  Receive Date: 20160328
  Receipt Date: 20160328
  Transmission Date: 20160526
  Serious: Yes (Other)
  Sender: FDA-Public Use
  Company Number: US-CIPLA LTD.-2016US02817

PATIENT

DRUGS (1)
  1. SERTRALINE [Suspect]
     Active Substance: SERTRALINE HYDROCHLORIDE
     Dosage: 50 MG, APPROXIMATELY A WEEK
     Route: 048
     Dates: start: 201603, end: 20160310

REACTIONS (4)
  - Burning sensation [Recovered/Resolved]
  - Pruritus [Recovered/Resolved]
  - Pharyngeal erythema [Recovered/Resolved]
  - Erythema [Recovered/Resolved]

NARRATIVE: CASE EVENT DATE: 201603
